FAERS Safety Report 8231854-9 (Version None)
Quarter: 2012Q1

REPORT INFORMATION
  Report Type: 
  Country: None (occurrence: None)
  Receive Date: 20120323
  Receipt Date: 20120316
  Transmission Date: 20120608
  Serious: Yes (Other)
  Sender: FDA-Public Use
  Company Number: GB-JNJFOC-20120309590

PATIENT
  Sex: Female

DRUGS (4)
  1. DURAGESIC-100 [Suspect]
     Indication: PAIN
     Route: 062
  2. DURAGESIC-100 [Suspect]
     Route: 062
     Dates: end: 20120315
  3. DURAGESIC-100 [Suspect]
     Route: 062
  4. DURAGESIC-100 [Suspect]
     Route: 062

REACTIONS (3)
  - MUSCLE STRAIN [None]
  - WRONG TECHNIQUE IN DRUG USAGE PROCESS [None]
  - WITHDRAWAL SYNDROME [None]
